FAERS Safety Report 8606168-5 (Version None)
Quarter: 2012Q3

REPORT INFORMATION
  Report Type: 
  Country: None (occurrence: None)
  Receive Date: 20120820
  Receipt Date: 19900326
  Transmission Date: 20120928
  Serious: Yes (Hospitalization, Other)
  Sender: FDA-Public Use
  Company Number: US-ROCHE-1101589

PATIENT
  Sex: Male

DRUGS (12)
  1. TRIDIL [Concomitant]
  2. MICRO-K [Concomitant]
  3. LANOXIN [Concomitant]
  4. LASIX [Concomitant]
  5. HEPARIN [Concomitant]
  6. NITROLINGUAL [Concomitant]
  7. PERI-COLACE (UNITED STATES) [Concomitant]
  8. CAPOTEN [Concomitant]
  9. TAMBOCOR [Concomitant]
  10. OXACILLIN [Concomitant]
  11. NITRO-DUR [Concomitant]
     Dosage: 15 MG PATCH PER 24 HOURS
  12. ACTIVASE [Suspect]
     Indication: MYOCARDIAL INFARCTION

REACTIONS (12)
  - VENTRICULAR TACHYCARDIA [None]
  - PAIN [None]
  - BLOOD PRESSURE DECREASED [None]
  - FATIGUE [None]
  - PERICARDITIS [None]
  - LEFT VENTRICULAR FAILURE [None]
  - APHAGIA [None]
  - PYREXIA [None]
  - GASTROINTESTINAL DISORDER [None]
  - CONSTIPATION [None]
  - CHEST PAIN [None]
  - ATRIAL FLUTTER [None]
